FAERS Safety Report 10045320 (Version 1)
Quarter: 2014Q1

REPORT INFORMATION
  Report Type: Spontaneous
  Country: IT (occurrence: FR)
  Receive Date: 20140328
  Receipt Date: 20140328
  Transmission Date: 20141002
  Serious: Yes (Hospitalization)
  Sender: FDA-Public Use
  Company Number: FR-FRI-1000065811

PATIENT
  Age: 41 Year
  Sex: Female

DRUGS (13)
  1. NEBIVOLOL [Suspect]
     Dosage: 5 MG
     Route: 048
  2. IMUREL [Suspect]
     Dosage: 50 MG
     Route: 048
     Dates: end: 20140217
  3. PRAVASTATIN [Suspect]
     Dosage: 20 MG
     Route: 048
  4. LASILIX [Suspect]
     Dosage: 40 MG
     Route: 048
  5. AZOPT [Suspect]
     Dosage: 10 MG/ML
     Dates: start: 201311
  6. CORTANCYL [Suspect]
     Dosage: 5 MG
     Route: 048
  7. INEXIUM [Suspect]
     Dosage: 20 MG
     Route: 048
  8. LUMIGAN [Suspect]
     Route: 047
  9. HYPERIUM [Suspect]
     Dosage: 1 MG
     Route: 048
  10. AMLODIPINE BESYLATE [Suspect]
     Dosage: 5 MG
     Route: 048
  11. PROGRAF [Suspect]
     Dosage: 6 MG
     Route: 048
  12. NOVOMIX [Suspect]
     Dosage: 30 IU
     Route: 058
  13. NOVORAPID [Suspect]
     Dosage: 14 IU
     Route: 058

REACTIONS (2)
  - Pancytopenia [Not Recovered/Not Resolved]
  - Pyrexia [Recovered/Resolved]
